FAERS Safety Report 15533825 (Version 1)
Quarter: 2018Q4

REPORT INFORMATION
  Report Type: Spontaneous
  Country: FR (occurrence: FR)
  Receive Date: 20181019
  Receipt Date: 20181019
  Transmission Date: 20190205
  Serious: Yes (Other)
  Sender: FDA-Public Use
  Company Number: FR-009507513-1810FRA007010

PATIENT
  Age: 78 Year
  Sex: Female

DRUGS (6)
  1. LIPTRUZET [Suspect]
     Active Substance: ATORVASTATIN CALCIUM\EZETIMIBE
     Indication: PRODUCT USED FOR UNKNOWN INDICATION
     Dosage: STRENGTH REPORTED AS : 10/40UNITS NOT PROVIDED
     Route: 048
     Dates: start: 201801, end: 2018
  2. DUOPLAVIN [Concomitant]
     Active Substance: ASPIRIN\CLOPIDOGREL
  3. NEBIVOLOL. [Concomitant]
     Active Substance: NEBIVOLOL
  4. LOSARTAN. [Concomitant]
     Active Substance: LOSARTAN
  5. PANTOPRAZOLE [Concomitant]
     Active Substance: PANTOPRAZOLE
  6. RILMENIDINE [Concomitant]
     Active Substance: RILMENIDINE

REACTIONS (1)
  - Atypical fibroxanthoma [Recovered/Resolved]

NARRATIVE: CASE EVENT DATE: 201806
